FAERS Safety Report 5896554-9 (Version None)
Quarter: 2008Q3

REPORT INFORMATION
  Report Type: 
  Country: None (occurrence: None)
  Receive Date: 20080923
  Receipt Date: 20080911
  Transmission Date: 20090109
  Serious: No
  Sender: FDA-Public Use
  Company Number: 20085593

PATIENT
  Sex: Female

DRUGS (1)
  1. LIORESAL [Suspect]
     Indication: MUSCLE SPASTICITY
     Dosage: 450 MCG, DAILY, INTRATHECAL
     Route: 037

REACTIONS (5)
  - BODY TEMPERATURE INCREASED [None]
  - CONVULSION [None]
  - DRUG DOSE OMISSION [None]
  - NAUSEA [None]
  - UNDERDOSE [None]
